FAERS Safety Report 21208620 (Version 1)
Quarter: 2022Q3

REPORT INFORMATION
  Report Type: Spontaneous
  Country: AU (occurrence: AU)
  Receive Date: 20220812
  Receipt Date: 20220812
  Transmission Date: 20221027
  Serious: Yes (Other)
  Sender: FDA-Public Use
  Company Number: AU-BAYER-2022P009907

PATIENT
  Age: 82 Year
  Sex: Male

DRUGS (1)
  1. DAROLUTAMIDE [Suspect]
     Active Substance: DAROLUTAMIDE
     Indication: Hormone-refractory prostate cancer
     Dosage: UNK
     Dates: start: 202105

REACTIONS (3)
  - Prostate cancer [None]
  - Fatigue [Unknown]
  - Depression [Unknown]
